FAERS Safety Report 4778900-2 (Version None)
Quarter: 2005Q3

REPORT INFORMATION
  Report Type: 
  Country: None (occurrence: None)
  Receive Date: 20050922
  Receipt Date: 20050912
  Transmission Date: 20060218
  Serious: Yes (Hospitalization)
  Sender: FDA-Public Use
  Company Number: 2005102805

PATIENT
  Age: 68 Year
  Sex: Female
  Weight: 81.6475 kg

DRUGS (10)
  1. ZOLOFT [Suspect]
     Indication: DEPRESSION
     Dosage: 25 MG (25 MG, 1 IN 1 D)
     Dates: start: 20050708
  2. TOPROL (METOPROLOL) [Suspect]
     Indication: ILL-DEFINED DISORDER
  3. NEXIUM [Concomitant]
  4. ASPIRIN [Concomitant]
  5. SYNTHROID [Concomitant]
  6. LIPITOR [Concomitant]
  7. BENICAR [Concomitant]
  8. FOSAMAX [Interacting]
  9. NEURONTIN [Concomitant]
  10. TRILLEPTAL (OXCARBAZEPINE) [Concomitant]

REACTIONS (10)
  - ACTIVITIES OF DAILY LIVING IMPAIRED [None]
  - ARTHROPATHY [None]
  - CONDITION AGGRAVATED [None]
  - DISORIENTATION [None]
  - DIZZINESS [None]
  - DRUG INTERACTION [None]
  - FEELING ABNORMAL [None]
  - HEART RATE DECREASED [None]
  - IMPAIRED DRIVING ABILITY [None]
  - TREMOR [None]
